FAERS Safety Report 17982528 (Version 1)
Quarter: 2020Q3

REPORT INFORMATION
  Report Type: Spontaneous
  Country: US (occurrence: US)
  Receive Date: 20200702
  Receipt Date: 20200702
  Transmission Date: 20201103
  Serious: No
  Sender: FDA-Public Use
  Company Number: None

PATIENT
  Age: 25 Year
  Sex: Female
  Weight: 104.4 kg

DRUGS (4)
  1. ASTHMA INHALERS [Concomitant]
  2. OZEMPIC [Suspect]
     Active Substance: SEMAGLUTIDE
     Indication: DIABETES MELLITUS
     Dosage: ?
     Route: 058
     Dates: start: 20200701, end: 20200702
  3. MAGNESIUM [Concomitant]
     Active Substance: MAGNESIUM
  4. OZEMPIC [Concomitant]
     Active Substance: SEMAGLUTIDE

REACTIONS (3)
  - Burning sensation [None]
  - Hot flush [None]
  - Urticaria [None]

NARRATIVE: CASE EVENT DATE: 20200702
